FAERS Safety Report 4679429-2 (Version None)
Quarter: 2005Q2

REPORT INFORMATION
  Report Type: 
  Country: None (occurrence: None)
  Receive Date: 20050602
  Receipt Date: 20050520
  Transmission Date: 20051028
  Serious: Yes (Other)
  Sender: FDA-Public Use
  Company Number: 2005AC00789

PATIENT
  Age: 26628 Day
  Sex: Female
  Weight: 66.4 kg

DRUGS (4)
  1. FASLODEX [Suspect]
     Indication: BREAST CANCER
     Route: 030
     Dates: start: 20050427, end: 20050427
  2. BUPRENORPHINE [Concomitant]
     Indication: PAIN
     Route: 062
     Dates: start: 20050301
  3. NOCTAMID [Concomitant]
     Indication: INSOMNIA
     Route: 048
  4. DILUTOL [Concomitant]
     Indication: HYPERTENSION
     Route: 048

REACTIONS (1)
  - PULMONARY EMBOLISM [None]
